FAERS Safety Report 14011091 (Version 1)
Quarter: 2017Q3

REPORT INFORMATION
  Report Type: Spontaneous
  Country: US (occurrence: US)
  Receive Date: 20170926
  Receipt Date: 20170926
  Transmission Date: 20171128
  Serious: Yes (Hospitalization)
  Sender: FDA-Public Use
  Company Number: US-BEH-2017083773

PATIENT
  Age: 67 Year
  Sex: Female
  Weight: 117.4 kg

DRUGS (44)
  1. MAGNESIUM OXIDE. [Concomitant]
     Active Substance: MAGNESIUM OXIDE
  2. ROPINIROLE. [Concomitant]
     Active Substance: ROPINIROLE
  3. ELIQUIS [Concomitant]
     Active Substance: APIXABAN
  4. VITAMIN D3 [Concomitant]
     Active Substance: CHOLECALCIFEROL
  5. VITAMINS WITH MINERALS [Concomitant]
     Active Substance: MINERALS\VITAMINS
  6. HIZENTRA [Suspect]
     Active Substance: HUMAN IMMUNOGLOBULIN G
     Dosage: UNK
     Route: 058
  7. GABAPENTIN. [Concomitant]
     Active Substance: GABAPENTIN
  8. DIPHENHYDRAMINE. [Concomitant]
     Active Substance: DIPHENHYDRAMINE
  9. EPIPEN [Concomitant]
     Active Substance: EPINEPHRINE
  10. PATANASE [Concomitant]
     Active Substance: OLOPATADINE HYDROCHLORIDE
  11. ALBUTEROL                          /00139501/ [Concomitant]
     Active Substance: ALBUTEROL
  12. IMODIUM A-D [Concomitant]
     Active Substance: LOPERAMIDE HYDROCHLORIDE
  13. HIZENTRA [Suspect]
     Active Substance: HUMAN IMMUNOGLOBULIN G
     Indication: MULTIPLE SCLEROSIS
     Dosage: UNK
     Route: 058
  14. OXYGEN. [Concomitant]
     Active Substance: OXYGEN
  15. ALLI [Concomitant]
     Active Substance: ORLISTAT
  16. ATORVASTATIN [Concomitant]
     Active Substance: ATORVASTATIN
  17. SYMBICORT [Concomitant]
     Active Substance: BUDESONIDE\FORMOTEROL FUMARATE DIHYDRATE
  18. LIDODERM [Concomitant]
     Active Substance: LIDOCAINE
  19. PROAIR HFA [Concomitant]
     Active Substance: ALBUTEROL SULFATE
  20. ROPINIROLE. [Concomitant]
     Active Substance: ROPINIROLE
  21. HIZENTRA [Suspect]
     Active Substance: HUMAN IMMUNOGLOBULIN G
     Indication: IMMUNODEFICIENCY COMMON VARIABLE
     Dosage: 15 G, QW
     Route: 058
     Dates: start: 20110412
  22. AUGMENTIN [Concomitant]
     Active Substance: AMOXICILLIN\CLAVULANATE POTASSIUM
  23. LOSARTAN. [Concomitant]
     Active Substance: LOSARTAN
  24. LASIX [Concomitant]
     Active Substance: FUROSEMIDE
  25. IRON [Concomitant]
     Active Substance: IRON
  26. NASACORT [Concomitant]
     Active Substance: TRIAMCINOLONE ACETONIDE
  27. BACTROBAN [Concomitant]
     Active Substance: MUPIROCIN\MUPIROCIN CALCIUM
  28. OCEAN NASAL [Concomitant]
  29. BACLOFEN. [Concomitant]
     Active Substance: BACLOFEN
  30. HUMALOG [Concomitant]
     Active Substance: INSULIN LISPRO
  31. SINGULAIR [Concomitant]
     Active Substance: MONTELUKAST SODIUM
  32. POTASSIUM CHLORIDE. [Concomitant]
     Active Substance: POTASSIUM CHLORIDE
  33. TYLENOL EXTRA STRENGTH [Concomitant]
     Active Substance: ACETAMINOPHEN
  34. COPAXONE [Concomitant]
     Active Substance: GLATIRAMER ACETATE
  35. SALINE                             /00075401/ [Concomitant]
     Active Substance: SODIUM CHLORIDE
  36. CALCIUM+D3 [Concomitant]
  37. MUCINEX [Concomitant]
     Active Substance: GUAIFENESIN
  38. HIZENTRA [Suspect]
     Active Substance: HUMAN IMMUNOGLOBULIN G
     Dosage: UNK
     Route: 058
  39. LANTUS [Concomitant]
     Active Substance: INSULIN GLARGINE
  40. LORATADINE. [Concomitant]
     Active Substance: LORATADINE
  41. IPRATROPIUM [Concomitant]
     Active Substance: IPRATROPIUM
  42. PRILOSEC [Concomitant]
     Active Substance: OMEPRAZOLE MAGNESIUM
  43. VESICARE [Concomitant]
     Active Substance: SOLIFENACIN SUCCINATE
  44. PROAIR HFA [Concomitant]
     Active Substance: ALBUTEROL SULFATE

REACTIONS (4)
  - Sinusitis [Unknown]
  - Atrial fibrillation [Unknown]
  - Cardiac ablation [Unknown]
  - Atrial flutter [Unknown]

NARRATIVE: CASE EVENT DATE: 20170908
